FAERS Safety Report 13497154 (Version 1)
Quarter: 2017Q2

REPORT INFORMATION
  Report Type: Report from Study
  Country: JP (occurrence: JP)
  Receive Date: 20170428
  Receipt Date: 20170428
  Transmission Date: 20170830
  Serious: Yes (Other)
  Sender: FDA-Public Use
  Company Number: JP-INCYTE CORPORATION-2017IN003161

PATIENT
  Age: 53 Year
  Sex: Female
  Weight: 53.2 kg

DRUGS (7)
  1. MABLIN [Concomitant]
     Active Substance: BUSULFAN
     Dosage: 5 MG, QD
     Route: 048
     Dates: start: 20151117, end: 20151215
  2. JAKAVI [Suspect]
     Active Substance: RUXOLITINIB
     Indication: POLYCYTHAEMIA VERA
     Dosage: 5 MG, QD
     Route: 048
     Dates: start: 20151010, end: 20151019
  3. MABLIN [Concomitant]
     Active Substance: BUSULFAN
     Indication: POLYCYTHAEMIA VERA
     Dosage: 5 MG, QD
     Route: 048
     Dates: start: 20151010, end: 20151019
  4. JAKAVI [Suspect]
     Active Substance: RUXOLITINIB
     Dosage: 5 MG, BID
     Route: 048
     Dates: start: 20151020, end: 20151105
  5. JAKAVI [Suspect]
     Active Substance: RUXOLITINIB
     Dosage: 5 MG, QD
     Route: 048
     Dates: start: 20151117, end: 20151215
  6. MABLIN [Concomitant]
     Active Substance: BUSULFAN
     Dosage: 5 MG, BID
     Route: 048
     Dates: start: 20151020, end: 20151105
  7. HYDREA [Concomitant]
     Active Substance: HYDROXYUREA
     Indication: POLYCYTHAEMIA VERA
     Route: 048

REACTIONS (2)
  - Hepatic function abnormal [Recovering/Resolving]
  - Polycythaemia vera [Unknown]

NARRATIVE: CASE EVENT DATE: 20151105
